FAERS Safety Report 5383167-0 (Version None)
Quarter: 2007Q3

REPORT INFORMATION
  Report Type: 
  Country: None (occurrence: None)
  Receive Date: 20070705
  Receipt Date: 20070621
  Transmission Date: 20080115
  Serious: Yes (Hospitalization, Disabling)
  Sender: FDA-Public Use
  Company Number: 2007S1000078

PATIENT
  Age: 62 Year
  Sex: Male
  Weight: 70.9879 kg

DRUGS (12)
  1. ACITRETIN [Suspect]
     Indication: PSORIASIS
     Dosage: QD; PO
     Route: 048
     Dates: start: 20050313, end: 20060911
  2. MORPHINE [Suspect]
     Indication: PAIN
  3. E45 WASH [Concomitant]
  4. PARAFFIN [Concomitant]
  5. CAPASAL [Concomitant]
  6. BECLOMETHASONE DIPROPIONATE [Concomitant]
  7. SALBUTAMOL [Concomitant]
  8. OLANZAPINE [Concomitant]
  9. MIRTAZAPINE [Concomitant]
  10. COAL TAR [Concomitant]
  11. AMITRIPTYLINE HCL [Concomitant]
  12. CELEBREX [Concomitant]

REACTIONS (20)
  - ARTHRITIS [None]
  - BONE PAIN [None]
  - CALCIFICATION OF MUSCLE [None]
  - CONSTIPATION [None]
  - DEHYDRATION [None]
  - DIARRHOEA [None]
  - DRUG INEFFECTIVE [None]
  - ENTHESOPATHY [None]
  - FATIGUE [None]
  - IMPAIRED HEALING [None]
  - INSOMNIA [None]
  - MOBILITY DECREASED [None]
  - MUSCULOSKELETAL DISCOMFORT [None]
  - MUSCULOSKELETAL STIFFNESS [None]
  - MYOSITIS [None]
  - NECK PAIN [None]
  - ORAL INTAKE REDUCED [None]
  - PAIN IN EXTREMITY [None]
  - TENDONITIS [None]
  - ULCER [None]
